FAERS Safety Report 25034322 (Version 1)
Quarter: 2025Q1

REPORT INFORMATION
  Report Type: Spontaneous
  Country: US (occurrence: US)
  Receive Date: 20250304
  Receipt Date: 20250304
  Transmission Date: 20250409
  Serious: No
  Sender: Kenvue
  Company Number: US-KENVUE-20250111524

PATIENT
  Sex: Female

DRUGS (3)
  1. TYLENOL [Suspect]
     Active Substance: ACETAMINOPHEN
     Indication: Headache
     Route: 065
  2. TRAMADOL [Concomitant]
     Active Substance: TRAMADOL
     Indication: Pain
     Route: 065
  3. TYVASO [Concomitant]
     Active Substance: TREPROSTINIL
     Indication: Product used for unknown indication

REACTIONS (1)
  - Drug ineffective [Unknown]
